FAERS Safety Report 5325855-8 (Version None)
Quarter: 2007Q2

REPORT INFORMATION
  Report Type: 
  Country: None (occurrence: None)
  Receive Date: 20070502
  Receipt Date: 20070412
  Transmission Date: 20071010
  Serious: Yes (Other)
  Sender: FDA-Public Use
  Company Number: AECAN200700071

PATIENT
  Age: 71 Year
  Sex: Female
  Weight: 55.5 kg

DRUGS (6)
  1. IMMUNE GLOBULIN INTRAVENOUS (HUMAN) [Suspect]
     Indication: PSEUDOMEMBRANOUS COLITIS
     Dosage: 25 MG; 1X; IV
     Route: 042
     Dates: start: 20070303
  2. PREVACID [Concomitant]
  3. ACETAMINOPHEN [Concomitant]
  4. CARBOCAL D [Concomitant]
  5. PREDNISONE TAB [Concomitant]
  6. CEFZIL [Concomitant]

REACTIONS (14)
  - ANURIA [None]
  - BONE PAIN [None]
  - CHILLS [None]
  - DYSPNOEA [None]
  - HYPERTENSION [None]
  - HYPOTENSION [None]
  - INFUSION RELATED REACTION [None]
  - OXYGEN SATURATION DECREASED [None]
  - PAIN IN EXTREMITY [None]
  - PALLOR [None]
  - PYREXIA [None]
  - TACHYCARDIA [None]
  - TACHYPNOEA [None]
  - TREMOR [None]
